FAERS Safety Report 7927963-1 (Version None)
Quarter: 2011Q4

REPORT INFORMATION
  Report Type: 
  Country: None (occurrence: None)
  Receive Date: 20111116
  Receipt Date: 20111104
  Transmission Date: 20120403
  Serious: Yes (Hospitalization)
  Sender: FDA-Public Use
  Company Number: 2011S1006168

PATIENT
  Age: 87 Year
  Sex: Male
  Weight: 70.3075 kg

DRUGS (10)
  1. CLARINEX   /01202601/ [Concomitant]
  2. POTASSIUM [Concomitant]
  3. PRADAXA [Concomitant]
  4. PROSCAR [Concomitant]
  5. FLEET GLYCERIN ADULT SUPPOSITORIES [Suspect]
     Indication: CONSTIPATION
     Dosage: 4 GM; TOTAL; RTL
     Route: 054
     Dates: start: 20111031, end: 20111031
  6. PRILOSEC [Concomitant]
  7. PROZAC [Concomitant]
  8. LASIX [Concomitant]
  9. COREG [Concomitant]
  10. FLOMAX [Concomitant]

REACTIONS (1)
  - VOMITING [None]
